FAERS Safety Report 9928507 (Version 1)
Quarter: 2014Q1

REPORT INFORMATION
  Report Type: Spontaneous
  Country: US (occurrence: None)
  Receive Date: 20140226
  Receipt Date: 20140226
  Transmission Date: 20141002
  Serious: Yes (Hospitalization)
  Sender: FDA-Public Use
  Company Number: None

PATIENT
  Age: 62 Year
  Sex: Male

DRUGS (2)
  1. OMEPRAZOLE [Suspect]
     Indication: GASTROOESOPHAGEAL REFLUX DISEASE
     Route: 048
     Dates: start: 20110718, end: 20131202
  2. OMEPRAZOLE [Suspect]
     Indication: OEDEMA
     Route: 048
     Dates: start: 20110718, end: 20131202

REACTIONS (1)
  - Tubulointerstitial nephritis [None]
